FAERS Safety Report 8101669-0 (Version None)
Quarter: 2012Q1

REPORT INFORMATION
  Report Type: 
  Country: None (occurrence: None)
  Receive Date: 20120129
  Receipt Date: 20111012
  Transmission Date: 20120608
  Serious: No
  Sender: FDA-Public Use
  Company Number: US-ABBOTT-11P-163-0863391-00

PATIENT
  Sex: Female

DRUGS (9)
  1. NEXIUM [Concomitant]
     Indication: GASTROOESOPHAGEAL REFLUX DISEASE
  2. HUMIRA [Suspect]
     Indication: PSORIATIC ARTHROPATHY
     Dates: start: 20110915, end: 20111011
  3. NEURONTIN [Concomitant]
     Indication: PAIN
  4. ALLEGRA [Concomitant]
     Indication: HYPERSENSITIVITY
  5. HUMIRA [Suspect]
     Indication: RHEUMATOID ARTHRITIS
  6. PREMARIN [Concomitant]
     Indication: HORMONE REPLACEMENT THERAPY
  7. ALLOPURINOL [Concomitant]
     Indication: GOUT
  8. METHOTREXATE [Concomitant]
     Indication: PSORIATIC ARTHROPATHY
  9. METHOTREXATE [Concomitant]
     Indication: RHEUMATOID ARTHRITIS

REACTIONS (1)
  - PALPITATIONS [None]
